FAERS Safety Report 6308540-5 (Version None)
Quarter: 2009Q3

REPORT INFORMATION
  Report Type: 
  Country: None (occurrence: None)
  Receive Date: 20090811
  Receipt Date: 20090805
  Transmission Date: 20100115
  Serious: Yes (Hospitalization)
  Sender: FDA-Public Use
  Company Number: 09TW001191

PATIENT
  Age: 46 Year
  Sex: Female

DRUGS (7)
  1. LITHIUM CARBONATE [Suspect]
     Indication: IRRITABILITY
     Dosage: 900 MG, QD, ORAL
     Route: 048
  2. LITHIUM CARBONATE [Suspect]
     Indication: PSYCHOMOTOR HYPERACTIVITY
     Dosage: 900 MG, QD, ORAL
     Route: 048
  3. HALOPERIDOL [Concomitant]
  4. TRIHEXYPHENIDYL HCL [Concomitant]
  5. BIPERIDEN HYDROCHLORIDE TAB [Concomitant]
  6. ARIPIPRAZOLE [Concomitant]
  7. ORAL BLOOD GLUCOSE LOWERING DRUGS [Concomitant]

REACTIONS (7)
  - MANIA [None]
  - PARKINSONISM [None]
  - PLEUROTHOTONUS [None]
  - POLYDIPSIA [None]
  - POLYURIA [None]
  - PSYCHOTIC DISORDER [None]
  - TORTICOLLIS [None]
